FAERS Safety Report 17571772 (Version 7)
Quarter: 2023Q1

REPORT INFORMATION
  Report Type: Report from Study
  Country: JP (occurrence: JP)
  Receive Date: 20200323
  Receipt Date: 20230205
  Transmission Date: 20230418
  Serious: Yes (Hospitalization, Other)
  Sender: FDA-Public Use
  Company Number: JP-ONO-2020JP006752

PATIENT
  Age: 49 Year
  Sex: Male
  Weight: 53.1 kg

DRUGS (14)
  1. ETELCALCETIDE [Suspect]
     Active Substance: ETELCALCETIDE
     Indication: Hyperparathyroidism secondary
     Dosage: 5 MILLIGRAM, Q56H
     Route: 065
     Dates: start: 20190226, end: 20190328
  2. ETELCALCETIDE [Suspect]
     Active Substance: ETELCALCETIDE
     Dosage: 7.5 MILLIGRAM, Q56H
     Route: 065
     Dates: start: 20190330, end: 20190718
  3. ETELCALCETIDE [Suspect]
     Active Substance: ETELCALCETIDE
     Dosage: 5 MILLIGRAM, Q56H
     Route: 065
     Dates: start: 20190720, end: 20190808
  4. ETELCALCETIDE [Suspect]
     Active Substance: ETELCALCETIDE
     Dosage: 2.5 MILLIGRAM, Q56H
     Route: 065
     Dates: start: 20190810, end: 20220519
  5. ETELCALCETIDE [Suspect]
     Active Substance: ETELCALCETIDE
     Dosage: 5 MILLIGRAM, Q56H
     Route: 065
     Dates: start: 20220521, end: 20220601
  6. ETELCALCETIDE [Suspect]
     Active Substance: ETELCALCETIDE
     Dosage: 5 MILLIGRAM, Q84H
     Route: 065
     Dates: start: 20220603
  7. WARKMIN [Concomitant]
     Active Substance: ALFACALCIDOL
     Dosage: 0.5 MICROGRAM, QD
     Route: 065
     Dates: start: 20180118, end: 20190620
  8. BIXALOMER [Concomitant]
     Active Substance: BIXALOMER
     Dosage: 3000 MILLIGRAM
     Route: 048
  9. CALTAN [Concomitant]
     Active Substance: CALCIUM CARBONATE
     Dosage: 3000 MILLIGRAM
     Route: 048
  10. FULSTAN [Concomitant]
     Dosage: 0.15 MICROGRAM, QD
     Route: 048
     Dates: start: 20190621, end: 20200907
  11. FULSTAN [Concomitant]
     Dosage: 0.3 MICROGRAM, QD
     Route: 048
     Dates: start: 20200908, end: 20210327
  12. FULSTAN [Concomitant]
     Dosage: 0.15 MICROGRAM, QD
     Route: 048
     Dates: start: 20210328
  13. Fesin [Concomitant]
     Dosage: 40 MILLIGRAM, QWK
     Route: 065
     Dates: start: 20210113, end: 20210122
  14. Fesin [Concomitant]
     Dosage: 40 MILLIGRAM, QWK
     Route: 065
     Dates: start: 20210915

REACTIONS (5)
  - Myocardial ischaemia [Recovered/Resolved]
  - Acute myocardial infarction [Recovered/Resolved]
  - Peripheral arterial occlusive disease [Recovered/Resolved]
  - Skin ulcer [Recovered/Resolved]
  - Contrast media allergy [Recovering/Resolving]

NARRATIVE: CASE EVENT DATE: 20190812
